FAERS Safety Report 23118519 (Version 1)
Quarter: 2023Q4

REPORT INFORMATION
  Report Type: Report from Study
  Country: US (occurrence: US)
  Receive Date: 20231028
  Receipt Date: 20231028
  Transmission Date: 20240110
  Serious: Yes (Disabling, Other)
  Sender: FDA-Public Use
  Company Number: US-ABBVIE-5465558

PATIENT
  Sex: Female

DRUGS (1)
  1. SKYRIZI [Suspect]
     Active Substance: RISANKIZUMAB-RZAA
     Indication: Psoriasis
     Dates: start: 20230127

REACTIONS (3)
  - Psoriatic arthropathy [Unknown]
  - Disability [Unknown]
  - Intestinal mass [Unknown]

NARRATIVE: CASE EVENT DATE: 20230101
